FAERS Safety Report 7394323-4 (Version None)
Quarter: 2011Q2

REPORT INFORMATION
  Report Type: 
  Country: None (occurrence: None)
  Receive Date: 20110405
  Receipt Date: 20110324
  Transmission Date: 20111010
  Serious: Yes (Death, Life-Threatening, Hospitalization, Other)
  Sender: FDA-Public Use
  Company Number: JP-ROCHE-747780

PATIENT
  Sex: Female
  Weight: 55 kg

DRUGS (8)
  1. NORVASC [Concomitant]
     Route: 048
     Dates: start: 20030101
  2. XELODA [Suspect]
     Indication: COLON CANCER
     Route: 048
     Dates: start: 20101029, end: 20101112
  3. AVASTIN [Suspect]
     Indication: COLON CANCER
     Dosage: DOSAGE IS UNCERTAIN.
     Route: 041
     Dates: start: 20101029, end: 20101029
  4. THYRADIN [Concomitant]
     Dosage: DRUG NAME REPORTED AS THYRADIN S.
     Route: 048
     Dates: start: 19970101
  5. PYDOXAL [Concomitant]
     Route: 048
     Dates: start: 20101029, end: 20101117
  6. TAKEPRON [Concomitant]
     Route: 048
  7. ELPLAT [Concomitant]
     Dosage: DOSAGE IS UNCERTAIN.
     Route: 041
     Dates: start: 20101029, end: 20101029
  8. ALFAROL [Concomitant]
     Route: 048
     Dates: start: 19970101

REACTIONS (10)
  - MELAENA [None]
  - FEBRILE NEUTROPENIA [None]
  - NEUTROPENIA [None]
  - BONE MARROW FAILURE [None]
  - THROMBOCYTOPENIA [None]
  - STOMATITIS [None]
  - RESPIRATORY TRACT HAEMORRHAGE [None]
  - INTESTINAL PERFORATION [None]
  - SPUTUM RETENTION [None]
  - DIARRHOEA [None]
